FAERS Safety Report 24762537 (Version 1)
Quarter: 2024Q4

REPORT INFORMATION
  Report Type: Spontaneous
  Country: KP (occurrence: KP)
  Receive Date: 20241221
  Receipt Date: 20241221
  Transmission Date: 20250115
  Serious: Yes (Other)
  Sender: AMGEN
  Company Number: KP-AMGEN-PRKSP2024247091

PATIENT

DRUGS (1)
  1. PROLIA [Suspect]
     Active Substance: DENOSUMAB
     Indication: Osteoporosis
     Dosage: UNK
     Route: 065

REACTIONS (9)
  - Device failure [Unknown]
  - Spinal fracture [Unknown]
  - Myelopathy [Unknown]
  - Compression fracture [Unknown]
  - Spinal compression fracture [Unknown]
  - Chance fracture [Unknown]
  - Radicular pain [Unknown]
  - Nervous system disorder [Unknown]
  - Pain [Unknown]
